FAERS Safety Report 25706010 (Version 2)
Quarter: 2025Q3

REPORT INFORMATION
  Report Type: Spontaneous
  Country: JP (occurrence: JP)
  Receive Date: 20250820
  Receipt Date: 20250828
  Transmission Date: 20251021
  Serious: Yes (Hospitalization, Other)
  Sender: PFIZER
  Company Number: JP-PFIZER INC-2000014442JP

PATIENT
  Age: 30 Year
  Sex: Male
  Weight: 65 kg

DRUGS (14)
  1. SOLU-CORTEF [Suspect]
     Active Substance: HYDROCORTISONE SODIUM SUCCINATE
     Indication: Asthmatic crisis
     Dosage: 0.4 G, 3X/DAY (1.2 G/DAY)
     Route: 042
     Dates: start: 19980422, end: 19980503
  2. SOLU-CORTEF [Suspect]
     Active Substance: HYDROCORTISONE SODIUM SUCCINATE
     Indication: Asthmatic crisis
  3. VECURONIUM BROMIDE [Suspect]
     Active Substance: VECURONIUM BROMIDE
     Indication: Endotracheal intubation
     Dosage: 6.0 MG, 1X/DAY
     Route: 042
     Dates: start: 19980425, end: 19980425
  4. PANCURONIUM BROMIDE [Suspect]
     Active Substance: PANCURONIUM BROMIDE
     Indication: Asthmatic crisis
     Route: 041
     Dates: start: 19980422, end: 19980425
  5. PANCURONIUM BROMIDE [Suspect]
     Active Substance: PANCURONIUM BROMIDE
     Indication: Hypoventilation
  6. EPINEPHRINE [Concomitant]
     Active Substance: EPINEPHRINE
     Dates: start: 19980423, end: 19980424
  7. AMINOPHYLLINE [Concomitant]
     Active Substance: AMINOPHYLLINE
     Dates: start: 19980422, end: 19980505
  8. AMPICILLIN [Concomitant]
     Active Substance: AMPICILLIN
     Dates: start: 19980422, end: 19980501
  9. DOBUTAMINE HYDROCHLORIDE [Concomitant]
     Active Substance: DOBUTAMINE HYDROCHLORIDE
     Dates: start: 19980424, end: 19980425
  10. FAMOTIDINE [Concomitant]
     Active Substance: FAMOTIDINE
     Dates: start: 19980422, end: 19980501
  11. FLUNITRAZEPAM [Concomitant]
     Active Substance: FLUNITRAZEPAM
     Route: 041
     Dates: start: 19980422, end: 19980424
  12. ISOFLURANE [Concomitant]
     Active Substance: ISOFLURANE
     Indication: Pneumothorax
     Dates: start: 19980424, end: 19980425
  13. ISOPROTERENOL HYDROCHLORIDE [Concomitant]
     Active Substance: ISOPROTERENOL HYDROCHLORIDE
     Dates: start: 19980423, end: 19980501
  14. LIDOCAINE HYDROCHLORIDE [Concomitant]
     Active Substance: LIDOCAINE HYDROCHLORIDE
     Dates: start: 19980424, end: 19980424

REACTIONS (1)
  - Myopathy [Recovered/Resolved]

NARRATIVE: CASE EVENT DATE: 19980426
